FAERS Safety Report 15034681 (Version 1)
Quarter: 2018Q2

REPORT INFORMATION
  Report Type: Spontaneous
  Country: GB (occurrence: GB)
  Receive Date: 20180620
  Receipt Date: 20180620
  Transmission Date: 20180711
  Serious: Yes (Other)
  Sender: FDA-Public Use
  Company Number: GB-TEVA-2018-GB-909823

PATIENT
  Age: 97 Year
  Sex: Female
  Weight: 66.8 kg

DRUGS (4)
  1. CO-AMOXICLAV [Concomitant]
     Active Substance: AMOXICILLIN\CLAVULANIC ACID
     Dosage: 1 DOSAGE FORMS DAILY; 250MG/125MG
     Route: 048
     Dates: start: 20180202, end: 20180425
  2. CAPASAL [Concomitant]
     Dosage: AS DIRECTED.
     Dates: start: 20180425
  3. OMEPRAZOLE. [Concomitant]
     Active Substance: OMEPRAZOLE
     Dosage: 20 MILLIGRAM DAILY;
     Route: 048
     Dates: start: 20180319, end: 20180425
  4. CLOPIDOGREL [Suspect]
     Active Substance: CLOPIDOGREL BISULFATE
     Route: 048

REACTIONS (2)
  - Vomiting [Recovered/Resolved]
  - Rectal haemorrhage [Recovered/Resolved]
